FAERS Safety Report 10257459 (Version 1)
Quarter: 2014Q2

REPORT INFORMATION
  Report Type: Spontaneous
  Country: CA (occurrence: None)
  Receive Date: 20140620
  Receipt Date: 20140620
  Transmission Date: 20141212
  Serious: Yes (Other)
  Sender: FDA-Public Use
  Company Number: 2014AP003397

PATIENT
  Age: 72 Year
  Sex: Female
  Weight: 70 kg

DRUGS (14)
  1. AZITHROMYCIN [Suspect]
     Indication: ATYPICAL MYCOBACTERIAL INFECTION
  2. ETHAMBUTOL [Suspect]
     Indication: ATYPICAL MYCOBACTERIAL INFECTION
  3. ISONIAZID (ISONIAZID) [Suspect]
     Indication: ATYPICAL MYCOBACTERIAL INFECTION
  4. RIFAMPICIN (RIFAMPICIN) [Concomitant]
  5. PYRIDOXINE (PYRIDOXINE) [Concomitant]
  6. ASPIRIN (ACETYLSALICYLIC ACID) [Concomitant]
  7. AMLODIPINE (AMLODIPINE) [Concomitant]
  8. ATORVASTATIN (ATORVASTATIN) [Concomitant]
  9. RAMIPRIL (RAMIPRIL) [Concomitant]
  10. METOPROLOL (METOPROLOL) [Concomitant]
  11. HYDROCHLOROTHIAZIDE (HYDROCHLOROTHIAZIDE) [Concomitant]
  12. TIOTROPIUM BROMIDE (TIOTROPIUM BROMIDE) [Concomitant]
  13. BUDESONIDE, FORMOTEROL (BUDESONIDE, FORMOTEROL) [Concomitant]
  14. SALBUTAMOL (SALBUTAMOL) [Concomitant]

REACTIONS (6)
  - Hemianopia heteronymous [None]
  - Vision blurred [None]
  - Visual field defect [None]
  - Intracranial pressure increased [None]
  - Chromatopsia [None]
  - Pupillary reflex impaired [None]
